FAERS Safety Report 5775744-X (Version None)
Quarter: 2008Q2

REPORT INFORMATION
  Report Type: 
  Country: None (occurrence: None)
  Receive Date: 20080601
  Receipt Date: 20080319
  Transmission Date: 20081010
  Serious: No
  Sender: FDA-Public Use
  Company Number: US200803004840

PATIENT
  Age: 52 Year
  Sex: Female
  Weight: 106.1 kg

DRUGS (9)
  1. BYETTA [Suspect]
     Indication: TYPE 2 DIABETES MELLITUS
     Dosage: 5 UG, 2/D, SUBCUTANEOUS
     Route: 058
     Dates: start: 20080221, end: 20080318
  2. BYETTA [Suspect]
     Dosage: 10 UG, 2/D, SUBCUTANEOUS
     Route: 058
     Dates: start: 20080319
  3. METFORMIN HCL [Concomitant]
  4. GLIMEPIRIDE [Concomitant]
  5. ACTOS [Concomitant]
  6. AVALIDE [Concomitant]
  7. CARDIZEM LA (DILTIAZEM) [Concomitant]
  8. ASPIRIN [Concomitant]
  9. VITAMIN D [Concomitant]

REACTIONS (3)
  - ABDOMINAL DISTENSION [None]
  - INJECTION SITE BRUISING [None]
  - WEIGHT INCREASED [None]
